FAERS Safety Report 7785434-X (Version None)
Quarter: 2011Q3

REPORT INFORMATION
  Report Type: 
  Country: None (occurrence: None)
  Receive Date: 20110929
  Receipt Date: 20110928
  Transmission Date: 20111222
  Serious: Yes (Hospitalization)
  Sender: FDA-Public Use
  Company Number: FR-BAYER-2011-091675

PATIENT
  Age: 49 Year
  Sex: Female

DRUGS (1)
  1. NEXAVAR [Suspect]
     Indication: HEPATIC NEOPLASM MALIGNANT
     Dosage: UNK
     Dates: start: 20090401

REACTIONS (3)
  - GASTRIC VARICES HAEMORRHAGE [None]
  - VESSEL PERFORATION [None]
  - ENDOTHELIAL DYSFUNCTION [None]
